FAERS Safety Report 8616876-8 (Version None)
Quarter: 2012Q3

REPORT INFORMATION
  Report Type: 
  Country: None (occurrence: None)
  Receive Date: 20120823
  Receipt Date: 20120809
  Transmission Date: 20120928
  Serious: No
  Sender: FDA-Public Use
  Company Number: US-009507513-1208USA004751

PATIENT

DRUGS (9)
  1. PEG-INTRON [Suspect]
     Dosage: 150 MICROGRAMS/0.5 MILLILITERS
     Route: 058
  2. DOXYCYCLINE HCL [Concomitant]
     Dosage: 20 MG, UNK
  3. LISINOPRIL [Concomitant]
     Dosage: 2.5 MG, UNK
  4. NEURONTIN [Concomitant]
     Dosage: 100 MG, UNK
  5. OXYCODONE HCL [Concomitant]
     Dosage: 5 MG, UNK
  6. VICTRELIS [Suspect]
     Dosage: UNK MG, UNK
  7. REBETOL [Suspect]
     Dosage: UNK MG, UNK
  8. OMEPRAZOLE [Concomitant]
     Dosage: 20 MG, UNK
  9. VIIBRYD [Concomitant]
     Dosage: 10 MG, UNK

REACTIONS (12)
  - GALLBLADDER PAIN [None]
  - GLOSSODYNIA [None]
  - PAROSMIA [None]
  - VISION BLURRED [None]
  - RASH [None]
  - IRRITABILITY [None]
  - DYSPNOEA [None]
  - FATIGUE [None]
  - CHOLECYSTITIS [None]
  - ERUCTATION [None]
  - GASTROOESOPHAGEAL REFLUX DISEASE [None]
  - DYSGEUSIA [None]
